FAERS Safety Report 9769605 (Version 3)
Quarter: 2017Q3

REPORT INFORMATION
  Report Type: Spontaneous
  Country: US (occurrence: US)
  Receive Date: 20131218
  Receipt Date: 20170919
  Transmission Date: 20171128
  Serious: Yes (Hospitalization, Other)
  Sender: FDA-Public Use
  Company Number: US-009507513-1312USA007753

PATIENT
  Sex: Female

DRUGS (1)
  1. NUVARING [Suspect]
     Active Substance: ETHINYL ESTRADIOL\ETONOGESTREL
     Indication: CONTRACEPTION
     Dosage: UNK
     Route: 067
     Dates: start: 2001, end: 20110314

REACTIONS (8)
  - Embolism venous [Unknown]
  - Hypercoagulation [Unknown]
  - Antiphospholipid antibodies positive [Unknown]
  - Transaminases increased [Unknown]
  - Venous thrombosis [Unknown]
  - Heparin-induced thrombocytopenia [Recovered/Resolved]
  - Haematoma [Unknown]
  - Splenic infarction [Unknown]

NARRATIVE: CASE EVENT DATE: 20110312
